FAERS Safety Report 24347250 (Version 1)
Quarter: 2024Q3

REPORT INFORMATION
  Report Type: Spontaneous
  Country: US (occurrence: US)
  Receive Date: 20240921
  Receipt Date: 20240921
  Transmission Date: 20241017
  Serious: No
  Sender: NOVARTIS
  Company Number: US-002147023-NVSC2024US188211

PATIENT
  Age: 42 Year
  Sex: Male

DRUGS (1)
  1. KESIMPTA [Suspect]
     Active Substance: OFATUMUMAB
     Indication: Multiple sclerosis
     Dosage: UNK
     Route: 065

REACTIONS (5)
  - Pyrexia [Unknown]
  - Chills [Unknown]
  - Myalgia [Unknown]
  - Influenza [Unknown]
  - Asthenia [Unknown]

NARRATIVE: CASE EVENT DATE: 20240912
